FAERS Safety Report 17989453 (Version 1)
Quarter: 2020Q3

REPORT INFORMATION
  Report Type: Spontaneous
  Country: CN (occurrence: CN)
  Receive Date: 20200707
  Receipt Date: 20200707
  Transmission Date: 20201103
  Serious: Yes (Hospitalization)
  Sender: FDA-Public Use
  Company Number: CN-SA-2020SA169709

PATIENT

DRUGS (5)
  1. INSULIN ASPART [Suspect]
     Active Substance: INSULIN ASPART
     Indication: DIABETIC NEPHROPATHY
     Dosage: UNK
     Route: 058
  2. NIAO DU QING [Concomitant]
     Indication: DIABETIC NEPHROPATHY
     Dosage: 3 BAGS / DAY, OCCASIONALLY 4 BAGS
     Route: 048
  3. LANTUS SOLOSTAR [Suspect]
     Active Substance: INSULIN GLARGINE
     Indication: DIABETIC NEPHROPATHY
     Dosage: 15?16IU/DAY
     Route: 058
  4. XI QING [Concomitant]
     Indication: DIABETIC NEPHROPATHY
     Dosage: (6 CAPSULES EACH TIME, THREE TIMES A DAY
     Route: 048
  5. LANTUS SOLOSTAR [Suspect]
     Active Substance: INSULIN GLARGINE
     Dosage: UNK
     Route: 058

REACTIONS (3)
  - Blood creatinine increased [Unknown]
  - Hypoglycaemia [Recovered/Resolved]
  - Diabetic nephropathy [Unknown]
